FAERS Safety Report 25049040 (Version 1)
Quarter: 2025Q1

REPORT INFORMATION
  Report Type: Spontaneous
  Country: CA (occurrence: CA)
  Receive Date: 20250307
  Receipt Date: 20250307
  Transmission Date: 20250408
  Serious: Yes (Death, Other)
  Sender: CELLTRION
  Company Number: CA-CELLTRION INC.-2025CA006373

PATIENT

DRUGS (19)
  1. RITUXIMAB [Suspect]
     Active Substance: RITUXIMAB
     Indication: Rheumatoid arthritis
     Route: 042
  2. ACTEMRA [Suspect]
     Active Substance: TOCILIZUMAB
     Indication: Rheumatoid arthritis
     Dosage: 616.0 MILLIGRAM, Q4WEEKS
     Route: 042
  3. ACTEMRA [Suspect]
     Active Substance: TOCILIZUMAB
     Dosage: 560.0 MILLIGRAM, Q4WEEKS
     Route: 042
  4. ACTEMRA [Suspect]
     Active Substance: TOCILIZUMAB
     Dosage: 576.0 MILLIGRAM, Q4WEEKS
     Route: 042
  5. ACTEMRA [Suspect]
     Active Substance: TOCILIZUMAB
     Dosage: 576.0 MILLIGRAM, Q4WEEKS
     Route: 042
  6. ACTEMRA [Suspect]
     Active Substance: TOCILIZUMAB
     Indication: Rheumatoid arthritis
     Dosage: 280.0 MILLIGRAM,Q4WEEKS
     Route: 042
  7. LORATADINE\PSEUDOEPHEDRINE SULFATE [Suspect]
     Active Substance: LORATADINE\PSEUDOEPHEDRINE SULFATE
     Indication: Premedication
     Route: 048
  8. TYLENOL [Suspect]
     Active Substance: ACETAMINOPHEN
     Indication: Product used for unknown indication
     Route: 065
  9. XARELTO [Suspect]
     Active Substance: RIVAROXABAN
     Indication: Atrial fibrillation
     Route: 065
  10. ACETAMINOPHEN [Concomitant]
     Active Substance: ACETAMINOPHEN
     Indication: Premedication
     Route: 048
  11. GABAPENTIN [Concomitant]
     Active Substance: GABAPENTIN
  12. METHYLPREDNISOLONE [Concomitant]
     Active Substance: METHYLPREDNISOLONE
     Indication: Premedication
     Route: 042
  13. METOPROLOL [Concomitant]
     Active Substance: METOPROLOL
  14. DOCONEXENT\ICOSAPENT [Concomitant]
     Active Substance: DOCONEXENT\ICOSAPENT
  15. OMEPRAZOLE [Concomitant]
     Active Substance: OMEPRAZOLE
  16. PREDNISONE [Concomitant]
     Active Substance: PREDNISONE
     Route: 065
  17. RISEDRONATE SODIUM [Concomitant]
     Active Substance: RISEDRONATE SODIUM
  18. SOFLAX C [Concomitant]
  19. WARFARIN [Concomitant]
     Active Substance: WARFARIN
     Indication: Atrial fibrillation
     Route: 065

REACTIONS (36)
  - Death [Fatal]
  - Arthropathy [Fatal]
  - Back pain [Fatal]
  - Dental caries [Fatal]
  - Blood pressure increased [Fatal]
  - Diarrhoea [Fatal]
  - Dry mouth [Fatal]
  - Epistaxis [Fatal]
  - Fall [Fatal]
  - Hallucination [Fatal]
  - Ill-defined disorder [Fatal]
  - Joint swelling [Fatal]
  - Limb injury [Fatal]
  - Limb mass [Fatal]
  - Oxygen saturation decreased [Fatal]
  - Peripheral swelling [Fatal]
  - Rheumatoid arthritis [Fatal]
  - Scab [Fatal]
  - Skin abrasion [Fatal]
  - Skin laceration [Fatal]
  - Skin ulcer [Fatal]
  - Ulcer [Fatal]
  - Weight increased [Fatal]
  - Arthralgia [Fatal]
  - Dizziness [Fatal]
  - Fatigue [Fatal]
  - Heart rate increased [Fatal]
  - Infusion related reaction [Fatal]
  - Nausea [Fatal]
  - Vomiting [Fatal]
  - Arthritis infective [Fatal]
  - Cellulitis [Fatal]
  - Nasopharyngitis [Fatal]
  - Localised infection [Fatal]
  - Oral infection [Fatal]
  - Abscess oral [Fatal]
